FAERS Safety Report 7966164-8 (Version None)
Quarter: 2011Q4

REPORT INFORMATION
  Report Type: 
  Country: None (occurrence: None)
  Receive Date: 20111208
  Receipt Date: 20111201
  Transmission Date: 20120403
  Serious: No
  Sender: FDA-Public Use
  Company Number: US-B.I. PHARMACEUTICALS,INC./RIDGEFIELD-2011-BP-27245BP

PATIENT
  Sex: Male

DRUGS (19)
  1. VYTORIN [Concomitant]
     Indication: BLOOD CHOLESTEROL INCREASED
  2. TORSEMIDE [Concomitant]
  3. MULTIVITAMIN [Concomitant]
     Indication: SUPPLEMENTATION THERAPY
  4. VITAMIN D [Concomitant]
     Indication: SUPPLEMENTATION THERAPY
  5. ASPIRIN [Concomitant]
     Indication: PROPHYLAXIS
  6. QUINAPRIL [Concomitant]
     Indication: CARDIAC DISORDER
  7. PROAIR HFA [Concomitant]
  8. PRADAXA [Suspect]
     Indication: ATRIAL FIBRILLATION
     Dosage: 300 MG
     Route: 048
  9. ASTELIN [Concomitant]
     Indication: CHRONIC OBSTRUCTIVE PULMONARY DISEASE
  10. VIT C [Concomitant]
     Indication: SUPPLEMENTATION THERAPY
  11. NITROGLYCERIN [Concomitant]
     Indication: ANGINA PECTORIS
  12. OXYGEN [Concomitant]
     Indication: CHRONIC OBSTRUCTIVE PULMONARY DISEASE
  13. ACAI [Concomitant]
     Indication: SUPPLEMENTATION THERAPY
  14. COREG CR [Concomitant]
     Indication: CARDIAC DISORDER
  15. SYMBACOURT [Concomitant]
     Indication: CHRONIC OBSTRUCTIVE PULMONARY DISEASE
  16. ISOSORBIDE DINITRATE [Concomitant]
     Indication: ANGINA PECTORIS
  17. NASONEX [Concomitant]
     Indication: CHRONIC OBSTRUCTIVE PULMONARY DISEASE
  18. SPIRIVA [Concomitant]
     Indication: CHRONIC OBSTRUCTIVE PULMONARY DISEASE
  19. KROGER ALLERGY RELIEF [Concomitant]
     Indication: SEASONAL ALLERGY

REACTIONS (3)
  - DYSPEPSIA [None]
  - DIARRHOEA [None]
  - INSOMNIA [None]
